FAERS Safety Report 7081947-7 (Version None)
Quarter: 2010Q4

REPORT INFORMATION
  Report Type: 
  Country: None (occurrence: None)
  Receive Date: 20101103
  Receipt Date: 20101026
  Transmission Date: 20110411
  Serious: Yes (Other)
  Sender: FDA-Public Use
  Company Number: CN-PFIZER INC-2010136209

PATIENT
  Age: 16 Month

DRUGS (6)
  1. VFEND [Suspect]
  2. ETOPOSIDE [Concomitant]
  3. CYCLOSPORINE [Concomitant]
  4. DEXAMETHASONE [Concomitant]
  5. PIPERACILLIN AND TAZOBACTAM [Concomitant]
  6. MEROPENEM [Concomitant]

REACTIONS (1)
  - LEFT VENTRICULAR HYPERTROPHY [None]
